FAERS Safety Report 9166917 (Version 1)
Quarter: 2013Q1

REPORT INFORMATION
  Report Type: Spontaneous
  Country: DE (occurrence: DE)
  Receive Date: 20130318
  Receipt Date: 20130318
  Transmission Date: 20140127
  Serious: Yes (Other)
  Sender: FDA-Public Use
  Company Number: PHHY2013DE024777

PATIENT
  Sex: Male

DRUGS (3)
  1. CUBICIN [Suspect]
     Indication: DEVICE RELATED INFECTION
     Dosage: 500 MG, EVERY 24 HOURS
     Dates: start: 20130306, end: 20130308
  2. RIFAMPICIN [Suspect]
     Indication: DEVICE RELATED INFECTION
     Dosage: UNK
     Dates: start: 20130306, end: 20130308
  3. ROCEPHIN [Suspect]
     Indication: DEVICE RELATED INFECTION
     Dosage: UNK
     Dates: start: 20130306, end: 20130308

REACTIONS (2)
  - Pneumonia [Recovering/Resolving]
  - Off label use [Unknown]
